FAERS Safety Report 13159017 (Version 3)
Quarter: 2019Q4

REPORT INFORMATION
  Report Type: Report from Study
  Country: DE (occurrence: DE)
  Receive Date: 20170127
  Receipt Date: 20191014
  Transmission Date: 20200122
  Serious: Yes (Disabling)
  Sender: FDA-Public Use
  Company Number: DE-BIOVITRUM-2009DE0029

PATIENT
  Sex: Male

DRUGS (5)
  1. ORFADIN [Suspect]
     Active Substance: NITISINONE
     Dosage: 0.28-0.3 MG/KG
     Route: 048
     Dates: start: 19961024, end: 20070110
  2. ORFADIN [Suspect]
     Active Substance: NITISINONE
     Dates: start: 20190328
  3. ORFADIN [Suspect]
     Active Substance: NITISINONE
     Dosage: 0.42-0.45 MG/KG
     Route: 048
     Dates: start: 20070111
  4. ORFADIN [Suspect]
     Active Substance: NITISINONE
     Dosage: 0.06 MG/KG
     Route: 048
     Dates: start: 19960104, end: 19961023
  5. ORFADIN [Suspect]
     Active Substance: NITISINONE
     Indication: TYROSINAEMIA
     Dosage: 0.04 MG/KG
     Route: 048
     Dates: start: 19951031, end: 19960103

REACTIONS (5)
  - Cognitive disorder [Not Recovered/Not Resolved]
  - Succinylacetone increased [Recovered/Resolved]
  - Memory impairment [Not Recovered/Not Resolved]
  - Amino acid level increased [Not Recovered/Not Resolved]
  - Amino acid level decreased [Unknown]

NARRATIVE: CASE EVENT DATE: 2008
